FAERS Safety Report 4601751-6 (Version None)
Quarter: 2005Q1

REPORT INFORMATION
  Report Type: 
  Country: None (occurrence: None)
  Receive Date: 20050131
  Receipt Date: 20041214
  Transmission Date: 20050727
  Serious: No
  Sender: FDA-Public Use
  Company Number: 200419618US

PATIENT
  Age: 68 Year
  Sex: Female

DRUGS (5)
  1. KETEK [Suspect]
  2. DIGOXIN [Concomitant]
  3. STEROID INHALER (NOS) [Concomitant]
  4. ANTIHISTAMINE [Concomitant]
  5. STEROID NASAL SPRAY (NOS) [Concomitant]

REACTIONS (3)
  - CHEST PAIN [None]
  - DYSPNOEA [None]
  - HYPOAESTHESIA [None]
